FAERS Safety Report 4718088-7 (Version None)
Quarter: 2005Q3

REPORT INFORMATION
  Report Type: 
  Country: None (occurrence: None)
  Receive Date: 20050718
  Receipt Date: 20050718
  Transmission Date: 20060218
  Serious: Yes (Life-Threatening, Hospitalization)
  Sender: FDA-Public Use
  Company Number: None

PATIENT
  Age: 73 Year
  Sex: Female
  Weight: 68 kg

DRUGS (7)
  1. ZOMETA [Suspect]
     Indication: MULTIPLE MYELOMA
     Dosage: 4MG  IV
     Route: 042
     Dates: start: 20050623, end: 20050623
  2. DEXAMETHASONE [Concomitant]
  3. THALIDOMIDE [Concomitant]
  4. COZAAR [Concomitant]
  5. DILTIAZEM [Concomitant]
  6. HYDROCHLOROTHIAZIDE [Concomitant]
  7. ATENOLOL [Concomitant]

REACTIONS (2)
  - HAEMODIALYSIS [None]
  - HYPOCALCAEMIA [None]
